FAERS Safety Report 4685769-3 (Version None)
Quarter: 2005Q2

REPORT INFORMATION
  Report Type: 
  Country: None (occurrence: None)
  Receive Date: 20050607
  Receipt Date: 20050607
  Transmission Date: 20051028
  Serious: Yes (Hospitalization)
  Sender: FDA-Public Use
  Company Number: None

PATIENT
  Age: 40 Year
  Sex: Male
  Weight: 129.3 kg

DRUGS (6)
  1. NABUMETONE [Suspect]
     Indication: BACK PAIN
  2. ZOCOR [Concomitant]
  3. LITHIUM [Concomitant]
  4. KLONOPIN [Concomitant]
  5. ZOLOFT [Concomitant]
  6. NORFLEX [Concomitant]

REACTIONS (3)
  - ABDOMINAL PAIN UPPER [None]
  - MELAENA [None]
  - PEPTIC ULCER HAEMORRHAGE [None]
